FAERS Safety Report 17091827 (Version 1)
Quarter: 2019Q4

REPORT INFORMATION
  Report Type: Spontaneous
  Country: IT (occurrence: IT)
  Receive Date: 20191129
  Receipt Date: 20191129
  Transmission Date: 20200122
  Serious: Yes (Hospitalization)
  Sender: FDA-Public Use
  Company Number: IT-TEVA-2019-IT-1142258

PATIENT
  Age: 70 Year
  Sex: Female

DRUGS (12)
  1. EUTIROX 75 MICROGRAMMI COMPRESSE [Concomitant]
     Active Substance: LEVOTHYROXINE SODIUM
     Indication: HYPOTHYROIDISM
     Dosage: 75 MCG
     Route: 048
  2. AKINETON 2 MG COMPRESSE [Concomitant]
     Dosage: 2 MG
     Route: 048
  3. RISPERDAL [Concomitant]
     Active Substance: RISPERIDONE
     Dosage: 1 MG
     Route: 048
  4. ATENOLOL. [Concomitant]
     Active Substance: ATENOLOL
     Dosage: 100 MG
  5. EUTIROX 100 MICROGRAMMI COMPRESSE [Concomitant]
     Active Substance: LEVOTHYROXINE SODIUM
     Indication: HYPOTHYROIDISM
     Dosage: 100 MCG
     Route: 048
  6. TELMISARTAN. [Concomitant]
     Active Substance: TELMISARTAN
     Dosage: 80 MG
     Route: 048
  7. CARDIOASPIRIN 100 MG COMPRESSE GASTRORESISTENTI [Concomitant]
     Active Substance: ASPIRIN
     Route: 048
  8. CARBOPLATINO TEVA 10 MG/ML [Suspect]
     Active Substance: CARBOPLATIN
     Indication: ENDOMETRIAL NEOPLASM
     Dosage: 445 MG PER 1 CYCLICAL
     Route: 042
     Dates: start: 20190912, end: 20191004
  9. LAROXYL 40 MG/ML GOCCE ORALI SOLUZIONE [Concomitant]
     Active Substance: AMITRIPTYLINE HYDROCHLORIDE
  10. SERETIDE DISKUS 50 MICROGRAMMI/100 MICROGRAMMI/DOSE DI POLVERE PER INA [Concomitant]
     Dosage: 50 MICROGRAMS / 100 MICROGRAMS / DOSE OF POWDER FOR INA
  11. PANTOPRAZOLE [Concomitant]
     Active Substance: PANTOPRAZOLE
     Dosage: 40 MG
     Route: 048
  12. CORDARONE [Concomitant]
     Active Substance: AMIODARONE HYDROCHLORIDE
     Dosage: 100 MG
     Route: 048

REACTIONS (1)
  - Febrile neutropenia [Recovering/Resolving]

NARRATIVE: CASE EVENT DATE: 20191011
